FAERS Safety Report 24203389 (Version 3)
Quarter: 2024Q4

REPORT INFORMATION
  Report Type: Spontaneous
  Country: CA (occurrence: CA)
  Receive Date: 20240813
  Receipt Date: 20241005
  Transmission Date: 20250115
  Serious: Yes (Hospitalization, Other)
  Sender: CELLTRION
  Company Number: CA-PFIZER INC-202400091964

PATIENT

DRUGS (7)
  1. INFLECTRA [Suspect]
     Active Substance: INFLIXIMAB-DYYB
     Indication: Colitis ulcerative
     Dosage: 600 MG, EVERY 8 WEEKS
     Route: 042
     Dates: start: 20200611, end: 20201126
  2. INFLECTRA [Suspect]
     Active Substance: INFLIXIMAB-DYYB
     Dosage: 1200 MG, EVERY 8 WEEKS
     Route: 042
     Dates: start: 20210120
  3. INFLECTRA [Suspect]
     Active Substance: INFLIXIMAB-DYYB
     Dosage: 1200 MG, EVERY 8 WEEKS
     Route: 042
     Dates: start: 20240221
  4. INFLECTRA [Suspect]
     Active Substance: INFLIXIMAB-DYYB
     Dosage: 1200 MG, EVERY 8 WEEKS
     Route: 042
     Dates: start: 20240417
  5. INFLECTRA [Suspect]
     Active Substance: INFLIXIMAB-DYYB
     Dosage: 1200 MG, 8 WEEKS 1 DAYS (PRESCRIBED EVERY 8 WEEKS)
     Route: 042
     Dates: start: 20240613, end: 20240613
  6. TELMISARTAN [Concomitant]
     Active Substance: TELMISARTAN
     Dosage: 80 MG
  7. WARFARIN [Concomitant]
     Active Substance: WARFARIN
     Dosage: 1 DF

REACTIONS (2)
  - Cardiac disorder [Unknown]
  - Condition aggravated [Recovering/Resolving]

NARRATIVE: CASE EVENT DATE: 20240417
